FAERS Safety Report 9373670 (Version 2)
Quarter: 2013Q3

REPORT INFORMATION
  Report Type: Spontaneous
  Country: FR (occurrence: FR)
  Receive Date: 20130627
  Receipt Date: 20130807
  Transmission Date: 20140515
  Serious: Yes (Other)
  Sender: FDA-Public Use
  Company Number: FR-MYLANLABS-2013S1013062

PATIENT
  Age: 68 Year
  Sex: Female

DRUGS (6)
  1. VALACICLOVIR [Suspect]
     Indication: HERPES ZOSTER
     Route: 048
     Dates: start: 20120727, end: 20130526
  2. VALACICLOVIR [Suspect]
     Indication: CHRONIC LYMPHOCYTIC LEUKAEMIA
     Route: 048
     Dates: start: 20120727, end: 20130526
  3. VALACICLOVIR [Suspect]
     Indication: HERPES ZOSTER
     Route: 048
     Dates: start: 20130527, end: 20130530
  4. VALACICLOVIR [Suspect]
     Indication: CHRONIC LYMPHOCYTIC LEUKAEMIA
     Route: 048
     Dates: start: 20130527, end: 20130530
  5. LEVOTHYROX [Concomitant]
     Indication: HYPOTHYROIDISM
     Route: 048
     Dates: start: 200105
  6. DOLIPRANE [Concomitant]
     Indication: PRODUCT USED FOR UNKNOWN INDICATION

REACTIONS (2)
  - Rectal haemorrhage [Recovered/Resolved]
  - Abdominal pain [Recovered/Resolved]
